FAERS Safety Report 6165820-4 (Version None)
Quarter: 2009Q2

REPORT INFORMATION
  Report Type: 
  Country: None (occurrence: None)
  Receive Date: 20090423
  Receipt Date: 20080410
  Transmission Date: 20091009
  Serious: Yes (Life-Threatening, Other)
  Sender: FDA-Public Use
  Company Number: IN-ASTRAZENECA-2008AP00726

PATIENT
  Age: 17331 Day
  Sex: Male

DRUGS (16)
  1. LIDOCAINE [Suspect]
     Dates: start: 20071123, end: 20071123
  2. AZD6140 CODE NOT BROKEN [Suspect]
     Indication: ACUTE CORONARY SYNDROME
     Route: 048
     Dates: start: 20071121
  3. CORDARONE [Suspect]
  4. MAGNESIUM SULFATE [Suspect]
     Dates: start: 20071122, end: 20071122
  5. ALDACTONE [Concomitant]
     Dates: start: 20071121, end: 20071128
  6. ALPRAX [Concomitant]
     Dates: start: 20071121
  7. DOPAMINE HCL [Concomitant]
     Dates: start: 20071121, end: 20071122
  8. LASIX [Concomitant]
     Dates: start: 20071121, end: 20071121
  9. ACETEN [Concomitant]
     Dates: start: 20071121, end: 20071128
  10. FORCEF [Concomitant]
     Dates: start: 20071121, end: 20071128
  11. DULCOLAX [Concomitant]
     Dates: start: 20071121, end: 20071128
  12. NIKORAN [Concomitant]
     Dates: start: 20071121, end: 20071122
  13. PANTOP [Concomitant]
     Dates: start: 20071121, end: 20071121
  14. STORVAS [Concomitant]
     Dates: start: 20071121
  15. EASYFLO [Concomitant]
     Dates: start: 20071121, end: 20071122
  16. ECOSPRIN [Concomitant]
     Dates: start: 20071121

REACTIONS (1)
  - ATRIOVENTRICULAR BLOCK COMPLETE [None]
